FAERS Safety Report 6239883-1 (Version None)
Quarter: 2009Q2

REPORT INFORMATION
  Report Type: 
  Country: None (occurrence: None)
  Receive Date: 20090618
  Receipt Date: 20090618
  Transmission Date: 20091009
  Serious: Yes (Other)
  Sender: FDA-Public Use
  Company Number: None

PATIENT
  Age: 50 Year
  Sex: Female
  Weight: 61.2356 kg

DRUGS (1)
  1. ZICAM NASAL SWAB MATRIXX INITIATIVES [Suspect]
     Indication: NASOPHARYNGITIS
     Dosage: ONE SWAB EVERY 4 HOURS NASAL
     Route: 045
     Dates: start: 20080328, end: 20080330

REACTIONS (1)
  - ANOSMIA [None]
